FAERS Safety Report 6135695-8 (Version None)
Quarter: 2009Q1

REPORT INFORMATION
  Report Type: 
  Country: None (occurrence: None)
  Receive Date: 20090327
  Receipt Date: 20090324
  Transmission Date: 20090719
  Serious: Yes (Hospitalization)
  Sender: FDA-Public Use
  Company Number: FR-WYE-G02976409

PATIENT
  Sex: Male

DRUGS (9)
  1. TORISEL [Suspect]
     Indication: RENAL CANCER RECURRENT
     Dosage: UNKNOWN
     Route: 042
     Dates: start: 20080404, end: 20080404
  2. PLAVIX [Concomitant]
     Dosage: UNKNOWN
     Route: 048
  3. TAHOR [Concomitant]
     Dosage: UNKNOWN
     Route: 048
  4. ASPIRIN [Concomitant]
     Dosage: UNKNOWN
  5. OROCAL VITAMIN D [Concomitant]
     Dosage: UNKNOWN
     Route: 048
  6. TENORMIN [Concomitant]
     Dosage: UNKNOWN
     Route: 048
  7. APROVEL [Concomitant]
     Dosage: UNKNOWN
     Route: 048
     Dates: start: 20071101
  8. KARDEGIC [Concomitant]
     Dosage: UNKNOWN
     Route: 048
  9. NEXIUM [Concomitant]
     Dosage: UNKNOWN
     Route: 048

REACTIONS (4)
  - CONDITION AGGRAVATED [None]
  - GLOMERULONEPHROPATHY [None]
  - PROTEINURIA [None]
  - RENAL NECROSIS [None]
